FAERS Safety Report 7559058-3 (Version None)
Quarter: 2011Q2

REPORT INFORMATION
  Report Type: 
  Country: None (occurrence: None)
  Receive Date: 20110525
  Receipt Date: 20110318
  Transmission Date: 20111010
  Serious: No
  Sender: FDA-Public Use
  Company Number: 325339

PATIENT
  Age: 75 Year
  Sex: Female

DRUGS (3)
  1. GLIPIZIDE [Concomitant]
  2. CIPRO [Concomitant]
  3. VICTOZA [Suspect]
     Indication: TYPE 2 DIABETES MELLITUS

REACTIONS (3)
  - HEADACHE [None]
  - CHEST PAIN [None]
  - BLOOD GLUCOSE INCREASED [None]
